FAERS Safety Report 8679005 (Version 3)
Quarter: 2012Q4

REPORT INFORMATION
  Report Type: Report from Study
  Country: DE (occurrence: DE)
  Receive Date: 20120724
  Receipt Date: 20120920
  Transmission Date: 20130627
  Serious: Yes (Other)
  Sender: FDA-Public Use
  Company Number: DE-BIOGENIDEC-2012BI026293

PATIENT
  Age: 29 Year
  Sex: Female

DRUGS (3)
  1. AVONEX [Suspect]
     Indication: MULTIPLE SCLEROSIS
     Route: 030
     Dates: start: 20100901, end: 20111107
  2. IBUPROFEN [Concomitant]
     Indication: HEADACHE
  3. PARACETAMOL [Concomitant]
     Indication: HEADACHE
     Dates: start: 20120426, end: 20120426

REACTIONS (1)
  - Pre-eclampsia [Recovered/Resolved]
